FAERS Safety Report 4300143-7 (Version None)
Quarter: 2004Q1

REPORT INFORMATION
  Report Type: 
  Country: None (occurrence: None)
  Receive Date: 20040218
  Receipt Date: 20040206
  Transmission Date: 20041129
  Serious: Yes (Life-Threatening, Hospitalization)
  Sender: FDA-Public Use
  Company Number: SK-SHR-04-020939

PATIENT
  Age: 55 Year
  Sex: Male

DRUGS (9)
  1. CAMPATH [Suspect]
     Indication: CHRONIC LYMPHOCYTIC LEUKAEMIA
     Dosage: 3 MG, 1 DOSE, INTRAVENOUS
     Route: 042
     Dates: start: 20040203, end: 20040203
  2. CAMPATH [Suspect]
     Indication: CHRONIC LYMPHOCYTIC LEUKAEMIA
     Dosage: 10 MG, 1 DOSE, INTRAVENOUS
     Route: 042
     Dates: start: 20040204, end: 20040204
  3. ALLOPURINOL [Concomitant]
  4. PARACETAMOL [Concomitant]
  5. ACYCLOVIR [Concomitant]
  6. PROMETHAZINE [Concomitant]
  7. CO-TRIMOXAZOLE [Concomitant]
  8. VERAPAMIL HYDROCHLORIDE [Concomitant]
  9. ANOPYRIN (ACETYLSALICYLIC ACID) [Concomitant]

REACTIONS (5)
  - ANAPHYLACTOID REACTION [None]
  - CHILLS [None]
  - PYREXIA [None]
  - SINUS BRADYCARDIA [None]
  - TREMOR [None]
